FAERS Safety Report 9078601 (Version 1)
Quarter: 2013Q1

REPORT INFORMATION
  Report Type: Other
  Country: US (occurrence: US)
  Receive Date: 20130215
  Receipt Date: 20130215
  Transmission Date: 20140127
  Serious: Yes (Hospitalization, Other)
  Sender: FDA-Public Use
  Company Number: US-FRI-1000042575

PATIENT
  Age: 71 Year
  Sex: Female

DRUGS (17)
  1. BYSTOLIC [Suspect]
     Dosage: 5 MG
  2. DABIGATRAN [Suspect]
     Indication: ATRIAL FIBRILLATION
     Dosage: 300 MG
  3. HEPARIN [Suspect]
     Indication: PROPHYLAXIS
     Dosage: 5000 IU
     Route: 058
  4. MULTAQ [Concomitant]
     Dosage: 800 MG
  5. NORVASC [Concomitant]
     Dosage: 2.5 MG
  6. BENICAR [Concomitant]
     Dosage: 40/20 MG
  7. ATIVAN [Concomitant]
     Dosage: 0.5 MG ONCE DAILY AS NEEDED
  8. PRILOSEC [Concomitant]
     Dosage: 20 MG
  9. COLACE [Concomitant]
     Dosage: 100 MG TWICE DAILY AS NEEDED
  10. ERGOCALCIFEROL [Concomitant]
     Dosage: 50,000IU MONTHLY
  11. CALCIUM [Concomitant]
  12. MVI [Concomitant]
  13. KETOROLAC [Concomitant]
     Dosage: 30 MG
  14. IBUPROFEN [Concomitant]
     Dosage: 600 MG
  15. MORPHINE [Concomitant]
     Dosage: 2 MG
  16. ACETAMINOPHEN WITH CODEINE [Concomitant]
  17. ONDANSETRON [Concomitant]
     Dosage: 4 MG AS NEEDED

REACTIONS (7)
  - Endometrial adenocarcinoma [Unknown]
  - Orthostatic hypotension [Unknown]
  - Abdominal distension [Recovered/Resolved]
  - Incisional drainage [Recovered/Resolved]
  - Ecchymosis [Recovered/Resolved]
  - Oedema [Recovered/Resolved]
  - Pain [Recovered/Resolved]
